FAERS Safety Report 6278587-6 (Version None)
Quarter: 2009Q3

REPORT INFORMATION
  Report Type: 
  Country: None (occurrence: None)
  Receive Date: 20090722
  Receipt Date: 20081215
  Transmission Date: 20100115
  Serious: No
  Sender: FDA-Public Use
  Company Number: US-BAUSCH-2008BL005259

PATIENT
  Age: 50 Year
  Sex: Female

DRUGS (2)
  1. OPCON-A [Suspect]
     Indication: OFF LABEL USE
     Route: 047
     Dates: start: 20081214, end: 20081214
  2. LEVOXYL [Concomitant]
     Indication: THYROID DISORDER
     Route: 048
     Dates: start: 20060101

REACTIONS (5)
  - CHROMATURIA [None]
  - DRUG ADMINISTRATION ERROR [None]
  - EYE DISORDER [None]
  - MYDRIASIS [None]
  - VISION BLURRED [None]
